FAERS Safety Report 7414881-0 (Version None)
Quarter: 2011Q2

REPORT INFORMATION
  Report Type: 
  Country: None (occurrence: None)
  Receive Date: 20110414
  Receipt Date: 20110331
  Transmission Date: 20111010
  Serious: Yes (Hospitalization)
  Sender: FDA-Public Use
  Company Number: CH-NAPPMUNDI-DEU-2010-0006587

PATIENT
  Age: 40 Year
  Sex: Male
  Weight: 70 kg

DRUGS (7)
  1. PERINDOPRIL ERBUMINE [Concomitant]
  2. ACETYLSALICYLIC ACID SRT [Concomitant]
  3. SORTIS [Concomitant]
  4. MORPHINE SULFATE [Suspect]
     Indication: DRUG DEPENDENCE
     Dosage: 1200 MG, DAILY
     Dates: start: 20100407
  5. ACE HEMMER [Concomitant]
  6. ATORVASTATIN [Concomitant]
  7. OMEPRAZOLUM [Concomitant]

REACTIONS (1)
  - GYNAECOMASTIA [None]
